FAERS Safety Report 13332588 (Version 1)
Quarter: 2017Q1

REPORT INFORMATION
  Report Type: Spontaneous
  Country: US (occurrence: US)
  Receive Date: 20170314
  Receipt Date: 20170314
  Transmission Date: 20170428
  Serious: Yes (Other)
  Sender: FDA-Public Use
  Company Number: None

PATIENT
  Age: 54 Year
  Sex: Female
  Weight: 70.65 kg

DRUGS (8)
  1. ADVOCARE [Concomitant]
  2. PREMARIN [Concomitant]
     Active Substance: ESTROGENS, CONJUGATED
  3. IMMETREX [Concomitant]
  4. ZOLPIDEM TARTRATE. [Suspect]
     Active Substance: ZOLPIDEM TARTRATE
     Indication: PAIN
     Dosage: ?          QUANTITY:30 TABLET(S);?
     Route: 048
     Dates: start: 20170121, end: 20170313
  5. AMBIEN [Concomitant]
     Active Substance: ZOLPIDEM TARTRATE
  6. TRAZODONE [Concomitant]
     Active Substance: TRAZODONE HYDROCHLORIDE
  7. VITAMIN [Concomitant]
     Active Substance: VITAMINS
  8. HYDROCODIENE [Concomitant]

REACTIONS (9)
  - Drug ineffective [None]
  - Fibromyalgia [None]
  - Fatigue [None]
  - Headache [None]
  - Arthralgia [None]
  - Pain [None]
  - Somnolence [None]
  - Condition aggravated [None]
  - Activities of daily living impaired [None]

NARRATIVE: CASE EVENT DATE: 20170123
